FAERS Safety Report 6677448-8 (Version None)
Quarter: 2010Q2

REPORT INFORMATION
  Report Type: 
  Country: None (occurrence: None)
  Receive Date: 20100412
  Receipt Date: 20100409
  Transmission Date: 20101027
  Serious: Yes (Hospitalization)
  Sender: FDA-Public Use
  Company Number: A0777157A

PATIENT
  Age: 52 Year
  Sex: Female
  Weight: 86.1 kg

DRUGS (5)
  1. AVANDIA [Suspect]
     Route: 048
     Dates: start: 20040901, end: 20070801
  2. LIPITOR [Concomitant]
  3. GLUCOPHAGE [Concomitant]
  4. NORVASC [Concomitant]
  5. DIOVAN [Concomitant]

REACTIONS (4)
  - CARDIAC ANEURYSM [None]
  - CORONARY ARTERY DISEASE [None]
  - MYOCARDIAL INFARCTION [None]
  - MYOCARDIAL ISCHAEMIA [None]
